FAERS Safety Report 15546280 (Version 1)
Quarter: 2018Q4

REPORT INFORMATION
  Report Type: Spontaneous
  Country: US (occurrence: US)
  Receive Date: 20181023
  Receipt Date: 20181023
  Transmission Date: 20190205
  Serious: Yes (Life-Threatening, Hospitalization)
  Sender: FDA-Public Use
  Company Number: None

PATIENT
  Age: 38 Year
  Sex: Female
  Weight: 63.9 kg

DRUGS (2)
  1. XARELTO [Suspect]
     Active Substance: RIVAROXABAN
     Indication: THROMBOSIS PROPHYLAXIS
     Route: 048
     Dates: start: 20181010, end: 20181017
  2. WARFARIN 5 MG [Concomitant]
     Active Substance: WARFARIN
     Dates: start: 20180921, end: 20181008

REACTIONS (1)
  - Dizziness [None]

NARRATIVE: CASE EVENT DATE: 20181017
